FAERS Safety Report 8070865-3 (Version None)
Quarter: 2011Q4

REPORT INFORMATION
  Report Type: 
  Country: None (occurrence: None)
  Receive Date: 20111221
  Receipt Date: 20101215
  Transmission Date: 20120403
  Serious: Yes (Hospitalization)
  Sender: FDA-Public Use
  Company Number: PHHY2010US68325

PATIENT
  Age: 78 Year
  Sex: Female
  Weight: 75 kg

DRUGS (4)
  1. NSAID'S (NO INGREDIENTS/SUBSTANCES) [Concomitant]
  2. EXJADE [Suspect]
     Indication: SICKLE CELL ANAEMIA
     Dosage: 1500 MG, QD, ORAL
     Route: 048
     Dates: start: 20100501, end: 20100701
  3. DIURETICS  (NO INGREDIENTS/SUBSTANCES) [Concomitant]
  4. CALCIUM CARBONATE [Concomitant]

REACTIONS (5)
  - BLOOD CREATININE INCREASED [None]
  - URINE OUTPUT DECREASED [None]
  - NAUSEA [None]
  - VOMITING [None]
  - RENAL DISORDER [None]
